FAERS Safety Report 9408448 (Version 1)
Quarter: 2013Q3

REPORT INFORMATION
  Report Type: Spontaneous
  Country: DE (occurrence: None)
  Receive Date: 20130716
  Receipt Date: 20130716
  Transmission Date: 20140515
  Serious: Yes (Hospitalization, Disabling, Other)
  Sender: FDA-Public Use
  Company Number: 1307-897

PATIENT
  Age: 74 Year
  Sex: Female

DRUGS (2)
  1. EYLEA [Suspect]
     Indication: AGE-RELATED MACULAR DEGENERATION
     Route: 031
     Dates: start: 20130228
  2. INSULIN (INSULIN) [Concomitant]

REACTIONS (8)
  - Pneumonia [None]
  - Fall [None]
  - Head injury [None]
  - Mass [None]
  - Cerebrovascular accident [None]
  - Cardiac pacemaker insertion [None]
  - Weight bearing difficulty [None]
  - Dementia [None]
